FAERS Safety Report 19016570 (Version 1)
Quarter: 2021Q1

REPORT INFORMATION
  Report Type: Spontaneous
  Country: US (occurrence: US)
  Receive Date: 20210316
  Receipt Date: 20210316
  Transmission Date: 20210420
  Serious: No
  Sender: FDA-Public Use
  Company Number: US-GALDERMA-US2020046550

PATIENT
  Age: 38 Year
  Sex: Female

DRUGS (24)
  1. PROACTIV MD ADAPALENE ACNE TREATMENT [Suspect]
     Active Substance: ADAPALENE
     Indication: SKIN IRRITATION
  2. PROACTIV MD DEEP CLEANSING FACE WASH [Concomitant]
     Active Substance: COSMETICS
     Indication: ERYTHEMA
  3. PROACTIV CLARIFYING NIGHT ACNE TREATMENT [Concomitant]
     Active Substance: SALICYLIC ACID
     Indication: ERYTHEMA
  4. PROACTIVPLUS REPAIRING CONCEALER (LIGHT/MEDIUM/TAN/DARK) [Concomitant]
     Active Substance: SALICYLIC ACID
     Indication: ACNE
     Route: 061
  5. PROACTIVPLUS REPAIRING CONCEALER (LIGHT/MEDIUM/TAN/DARK) [Concomitant]
     Active Substance: SALICYLIC ACID
     Indication: ERYTHEMA
  6. PROACTIV MD ADAPALENE ACNE TREATMENT [Suspect]
     Active Substance: ADAPALENE
     Indication: ERYTHEMA
  7. PROACTIV MOISTURE REPAIR [Concomitant]
     Active Substance: COSMETICS
     Indication: ACNE
     Route: 061
  8. PROACTIV ADVANCED DARK SPOT CORRECTING SERUM [Concomitant]
     Active Substance: HYDROQUINONE
     Indication: ERYTHEMA
  9. PROACTIV GREEN TEA MOISTURIZER [Concomitant]
     Active Substance: COSMETICS
     Indication: SKIN IRRITATION
  10. PROACTIVPLUS REPAIRING CONCEALER (LIGHT/MEDIUM/TAN/DARK) [Concomitant]
     Active Substance: SALICYLIC ACID
     Indication: SKIN IRRITATION
  11. PROACTIV SKIN PURIFYING MASK [Concomitant]
     Active Substance: SULFUR
     Indication: ERYTHEMA
  12. PROACTIV CLARIFYING NIGHT ACNE TREATMENT [Concomitant]
     Active Substance: SALICYLIC ACID
     Indication: ACNE
     Route: 061
  13. PROACTIV MOISTURE REPAIR [Concomitant]
     Active Substance: COSMETICS
     Indication: ERYTHEMA
  14. PROACTIV GREEN TEA MOISTURIZER [Concomitant]
     Active Substance: COSMETICS
     Indication: ERYTHEMA
  15. PROACTIV ADVANCED DARK SPOT CORRECTING SERUM [Concomitant]
     Active Substance: HYDROQUINONE
     Indication: SKIN IRRITATION
  16. PROACTIV MD ADAPALENE ACNE TREATMENT [Suspect]
     Active Substance: ADAPALENE
     Indication: ACNE
     Dosage: 0.1%
     Route: 061
  17. PROACTIV SKIN PURIFYING MASK [Concomitant]
     Active Substance: SULFUR
     Indication: SKIN IRRITATION
  18. PROACTIV CLARIFYING NIGHT ACNE TREATMENT [Concomitant]
     Active Substance: SALICYLIC ACID
     Indication: SKIN IRRITATION
  19. PROACTIV ADVANCED DARK SPOT CORRECTING SERUM [Concomitant]
     Active Substance: HYDROQUINONE
     Indication: ACNE
     Route: 061
  20. PROACTIV MD DEEP CLEANSING FACE WASH [Concomitant]
     Active Substance: COSMETICS
     Indication: SKIN IRRITATION
  21. PROACTIV MOISTURE REPAIR [Concomitant]
     Active Substance: COSMETICS
     Indication: SKIN IRRITATION
  22. PROACTIV SKIN PURIFYING MASK [Concomitant]
     Active Substance: SULFUR
     Indication: ACNE
     Route: 061
  23. PROACTIV MD DEEP CLEANSING FACE WASH [Concomitant]
     Active Substance: COSMETICS
     Indication: ACNE
     Route: 061
  24. PROACTIV GREEN TEA MOISTURIZER [Concomitant]
     Active Substance: COSMETICS
     Indication: ACNE
     Route: 061

REACTIONS (3)
  - Drug ineffective [Unknown]
  - Inappropriate schedule of product administration [Recovered/Resolved]
  - Overdose [Recovered/Resolved]
